FAERS Safety Report 21820168 (Version 1)
Quarter: 2023Q1

REPORT INFORMATION
  Report Type: Spontaneous
  Country: US (occurrence: US)
  Receive Date: 20230105
  Receipt Date: 20230105
  Transmission Date: 20230417
  Serious: Yes (Other)
  Sender: FDA-Public Use
  Company Number: US-drreddys-LIT/USA/22/0159232

PATIENT
  Age: 28 Year
  Sex: Female

DRUGS (3)
  1. LURASIDONE [Suspect]
     Active Substance: LURASIDONE
     Indication: Bipolar II disorder
     Dosage: SUBSEQUENTLY INITIATED AND TITRATED TO 40MG DAILY
  2. LURASIDONE [Suspect]
     Active Substance: LURASIDONE
  3. LEVOTHYROXINE [Concomitant]
     Active Substance: LEVOTHYROXINE
     Indication: Hypothyroidism

REACTIONS (3)
  - Neutropenia [Unknown]
  - Akathisia [Unknown]
  - Drug ineffective [Unknown]
